FAERS Safety Report 24912267 (Version 1)
Quarter: 2025Q1

REPORT INFORMATION
  Report Type: Spontaneous
  Country: CN (occurrence: CN)
  Receive Date: 20250131
  Receipt Date: 20250131
  Transmission Date: 20250409
  Serious: Yes (Other)
  Sender: BRACCO
  Company Number: CN-BRACCO-2025CN00509

PATIENT
  Age: 79 Year
  Sex: Male

DRUGS (1)
  1. IOMERON [Suspect]
     Active Substance: IOMEPROL
     Indication: Angiocardiogram
     Route: 013
     Dates: start: 20250114, end: 20250114

REACTIONS (2)
  - Altered state of consciousness [Recovering/Resolving]
  - Restlessness [Recovering/Resolving]

NARRATIVE: CASE EVENT DATE: 20250115
